FAERS Safety Report 8200234-4 (Version None)
Quarter: 2012Q1

REPORT INFORMATION
  Report Type: 
  Country: None (occurrence: None)
  Receive Date: 20120309
  Receipt Date: 20120309
  Transmission Date: 20120608
  Serious: Yes (Other)
  Sender: FDA-Public Use
  Company Number: None

PATIENT
  Age: 64 Year
  Sex: Female
  Weight: 88.4514 kg

DRUGS (1)
  1. RECLAST [Suspect]
     Indication: OSTEOPENIA
     Dosage: 5 MG. ONCE YEAR

REACTIONS (13)
  - PYREXIA [None]
  - ABDOMINAL PAIN UPPER [None]
  - DIZZINESS [None]
  - EYE PAIN [None]
  - VERTIGO [None]
  - CHILLS [None]
  - INFUSION RELATED REACTION [None]
  - ARTHROPATHY [None]
  - EAR PAIN [None]
  - HYPERHIDROSIS [None]
  - ASTHENIA [None]
  - NECK PAIN [None]
  - ORAL PAIN [None]
